FAERS Safety Report 5999670 (Version 3)
Quarter: 2016Q1

REPORT INFORMATION
  Report Type: Spontaneous
  Country: GB (occurrence: GB)
  Receive Date: 20060307
  Receipt Date: 20160113
  Transmission Date: 20160526
  Serious: Yes (Congenital Anomaly, Other)
  Sender: FDA-Public Use
  Company Number: GB-BRISTOL-MYERS SQUIBB COMPANY-13299722

PATIENT

DRUGS (3)
  1. LORAZEPAM. [Concomitant]
     Active Substance: LORAZEPAM
     Indication: PRODUCT USED FOR UNKNOWN INDICATION
     Route: 064
  2. ZOPICLONE [Concomitant]
     Active Substance: ZOPICLONE
     Indication: PRODUCT USED FOR UNKNOWN INDICATION
     Route: 064
  3. ABILIFY [Suspect]
     Active Substance: ARIPIPRAZOLE
     Indication: PRODUCT USED FOR UNKNOWN INDICATION
     Dosage: UNK
     Route: 064

REACTIONS (9)
  - Atrial septal defect [Unknown]
  - Foetal exposure during pregnancy [Unknown]
  - Congenital cystic kidney disease [Unknown]
  - Syndactyly [Unknown]
  - Ventricular septal defect [Unknown]
  - Umbilical cord abnormality [Unknown]
  - Crying [Unknown]
  - Anal atresia [Unknown]
  - Cardiac murmur [Unknown]
